FAERS Safety Report 12490250 (Version 1)
Quarter: 2016Q2

REPORT INFORMATION
  Report Type: Spontaneous
  Country: BR (occurrence: BR)
  Receive Date: 20160622
  Receipt Date: 20160622
  Transmission Date: 20160815
  Serious: Yes (Other)
  Sender: FDA-Public Use
  Company Number: BR-009507513-1606BRA008658

PATIENT
  Age: 24 Year
  Sex: Female

DRUGS (1)
  1. NUVARING [Suspect]
     Active Substance: ETHINYL ESTRADIOL\ETONOGESTREL
     Indication: CONTRACEPTION
     Dosage: CYCLE-3 WKS OF USE AND 1 WK OF PAUSE
     Route: 067
     Dates: start: 20151202

REACTIONS (4)
  - Withdrawal bleed [Recovered/Resolved]
  - Unintended pregnancy [Unknown]
  - Pregnancy on contraceptive [Unknown]
  - Amenorrhoea [Not Recovered/Not Resolved]

NARRATIVE: CASE EVENT DATE: 20151223
